FAERS Safety Report 7158287-0 (Version None)
Quarter: 2010Q4

REPORT INFORMATION
  Report Type: 
  Country: None (occurrence: None)
  Receive Date: 20101130
  Receipt Date: 20101115
  Transmission Date: 20110411
  Serious: Yes (Other)
  Sender: FDA-Public Use
  Company Number: DSJ-2010-20415

PATIENT
  Age: 78 Year
  Sex: Male

DRUGS (7)
  1. OLMESARTAN MEDOXOMIL [Suspect]
     Indication: HYPERTENSION
     Dosage: 20 MG, PER ORAL
     Route: 048
     Dates: start: 20090603
  2. CALBLOCK (AZELNIDIPINE) (TABLET) (AZELNIDIPINE) [Suspect]
     Indication: HYPERTENSION
     Dosage: 16 MG, PER ORAL
     Route: 048
     Dates: start: 20090603
  3. ASPIRIN [Concomitant]
  4. DORNER (BERAPROST SODIUM) (BERAPROST SODIUM) [Concomitant]
  5. WARFARIN SODIUM [Concomitant]
  6. LIVALO (ITAVASTATIN CALCIUM) (ITAVASTATIN CALCIUM) [Concomitant]
  7. LUPRAC (TORASEMIDE) (TORASEMIDE) [Concomitant]

REACTIONS (1)
  - CEREBRAL INFARCTION [None]
